FAERS Safety Report 21885999 (Version 2)
Quarter: 2023Q1

REPORT INFORMATION
  Report Type: Spontaneous
  Country: DE (occurrence: DE)
  Receive Date: 20230119
  Receipt Date: 20230209
  Transmission Date: 20230417
  Serious: Yes (Other)
  Sender: FDA-Public Use
  Company Number: DE-PFIZER INC-202300021538

PATIENT
  Age: 62 Year
  Sex: Female
  Weight: 68 kg

DRUGS (2)
  1. INLYTA [Suspect]
     Active Substance: AXITINIB
     Indication: Chromophobe renal cell carcinoma
     Dosage: 5 MG, 2X/DAY
     Dates: start: 202110, end: 202301
  2. KEYTRUDA [Suspect]
     Active Substance: PEMBROLIZUMAB
     Indication: Chromophobe renal cell carcinoma
     Dosage: 300 MG, EVERY 3 WEEKS
     Dates: start: 202110

REACTIONS (3)
  - Pancreatitis [Recovering/Resolving]
  - Abdominal pain upper [Unknown]
  - Diarrhoea [Recovered/Resolved]

NARRATIVE: CASE EVENT DATE: 20221101
